FAERS Safety Report 6686333-7 (Version None)
Quarter: 2010Q2

REPORT INFORMATION
  Report Type: 
  Country: None (occurrence: None)
  Receive Date: 20100419
  Receipt Date: 20100408
  Transmission Date: 20101027
  Serious: Yes (Hospitalization)
  Sender: FDA-Public Use
  Company Number: US-ASTRAZENECA-2010SE15365

PATIENT
  Age: 28 Year
  Sex: Male

DRUGS (4)
  1. SEROQUEL XR [Suspect]
     Indication: SCHIZOPHRENIA
     Route: 048
  2. SEROQUEL XR [Suspect]
     Dosage: 300 MG FIFTEEN TABLETS OF SEROQUEL XR, TOTAL 4500 MG
     Route: 048
  3. ABILIFY [Concomitant]
  4. PROLIXIN DECANOATE [Concomitant]

REACTIONS (6)
  - AGGRESSION [None]
  - DELIRIUM [None]
  - OVERDOSE [None]
  - SOMNOLENCE [None]
  - SUICIDE ATTEMPT [None]
  - TACHYCARDIA [None]
